FAERS Safety Report 19156897 (Version 1)
Quarter: 2021Q2

REPORT INFORMATION
  Report Type: Spontaneous
  Country: NL (occurrence: NL)
  Receive Date: 20210420
  Receipt Date: 20210420
  Transmission Date: 20210717
  Serious: Yes (Other)
  Sender: FDA-Public Use
  Company Number: NL-SUN PHARMACEUTICAL INDUSTRIES LTD-2021R1-291615

PATIENT
  Age: 17 Year
  Sex: Male

DRUGS (2)
  1. VINORELBINE [Suspect]
     Active Substance: VINORELBINE TARTRATE
     Indication: INFLAMMATORY MYOFIBROBLASTIC TUMOUR
     Dosage: UNK
     Route: 065
  2. METHOTREXATE. [Suspect]
     Active Substance: METHOTREXATE
     Indication: INFLAMMATORY MYOFIBROBLASTIC TUMOUR
     Dosage: UNK
     Route: 065

REACTIONS (2)
  - Metastases to lung [Recovered/Resolved]
  - Disease recurrence [Recovered/Resolved]
